FAERS Safety Report 5831554-6 (Version None)
Quarter: 2008Q3

REPORT INFORMATION
  Report Type: 
  Country: None (occurrence: None)
  Receive Date: 20080801
  Receipt Date: 20080721
  Transmission Date: 20090109
  Serious: Yes (Hospitalization)
  Sender: FDA-Public Use
  Company Number: BR-PFIZER INC-2008061318

PATIENT
  Sex: Female
  Weight: 58 kg

DRUGS (3)
  1. CELEBREX [Suspect]
     Indication: KNEE OPERATION
     Route: 048
  2. TYLENOL [Concomitant]
     Route: 048
  3. HERBAL PREPARATION [Concomitant]
     Route: 065

REACTIONS (3)
  - HEADACHE [None]
  - MEDICATION ERROR [None]
  - SPINAL OPERATION [None]
